FAERS Safety Report 5818567-5 (Version None)
Quarter: 2008Q3

REPORT INFORMATION
  Report Type: 
  Country: None (occurrence: None)
  Receive Date: 20080718
  Receipt Date: 20080707
  Transmission Date: 20090109
  Serious: Yes (Other)
  Sender: FDA-Public Use
  Company Number: 88249

PATIENT
  Age: 2 Year
  Sex: Female
  Weight: 11.7935 kg

DRUGS (1)
  1. LORATADINE [Suspect]
     Dosage: /ONCE/ORAL
     Route: 048
     Dates: start: 20080206, end: 20080206

REACTIONS (3)
  - ACCIDENTAL DRUG INTAKE BY CHILD [None]
  - HEART RATE INCREASED [None]
  - VOMITING [None]
